FAERS Safety Report 6648270-3 (Version None)
Quarter: 2010Q1

REPORT INFORMATION
  Report Type: 
  Country: None (occurrence: None)
  Receive Date: 20100318
  Receipt Date: 20100308
  Transmission Date: 20100710
  Serious: Yes (Hospitalization)
  Sender: FDA-Public Use
  Company Number: 1000012431

PATIENT
  Age: 61 Year
  Sex: Male

DRUGS (11)
  1. NEBIVOLOL HCL [Suspect]
     Indication: HYPERTENSION
     Dosage: 5 MG (5 MG, 1 IN 1 D), ORAL
     Route: 048
  2. PRAZOSIN HCL [Suspect]
     Dosage: ORAL
     Route: 048
  3. RAMIPRIL [Suspect]
     Dosage: 10 MG (10MG, 1 IN 1 D), ORAL
     Route: 048
  4. AMLOR [Suspect]
     Dosage: 10 MG (10 MG, 1 IN 1 D), ORAL
  5. ESIDRIX [Suspect]
     Dosage: 25 MG (25 MG, 1 IN 1 D)
  6. TEGRETOL [Concomitant]
  7. KARDEGIC [Concomitant]
  8. CRESTOR [Concomitant]
  9. GLUCOPHAGE [Concomitant]
  10. NEXIUM [Concomitant]
  11. INSULIN [Concomitant]

REACTIONS (5)
  - BLOOD PRESSURE SYSTOLIC INCREASED [None]
  - DRUG INTERACTION [None]
  - LOSS OF CONSCIOUSNESS [None]
  - MALAISE [None]
  - ORTHOSTATIC HYPOTENSION [None]
